FAERS Safety Report 19520035 (Version 2)
Quarter: 2021Q3

REPORT INFORMATION
  Report Type: Report from Study
  Country: CA (occurrence: CA)
  Receive Date: 20210712
  Receipt Date: 20210716
  Transmission Date: 20211014
  Serious: Yes (Death, Hospitalization, Other)
  Sender: FDA-Public Use
  Company Number: CA-MYLANLABS-2021M1030030

PATIENT
  Age: 72 Year
  Sex: Female

DRUGS (2)
  1. CLOZAPINE. [Suspect]
     Active Substance: CLOZAPINE
     Dosage: 125 MILLIGRAM, QD (37.5 MG Q AM, 87.5 MG HS)
     Dates: start: 202004, end: 202105
  2. CLOZAPINE. [Suspect]
     Active Substance: CLOZAPINE
     Indication: SCHIZOPHRENIA
     Dosage: UNK
     Dates: start: 20200113

REACTIONS (6)
  - Schizophrenia [Unknown]
  - Hypernatraemia [Unknown]
  - Urosepsis [Unknown]
  - Depressed level of consciousness [Unknown]
  - Pneumonia aspiration [Unknown]
  - Death [Fatal]

NARRATIVE: CASE EVENT DATE: 20210512
